FAERS Safety Report 8547719-9 (Version None)
Quarter: 2012Q3

REPORT INFORMATION
  Report Type: 
  Country: None (occurrence: None)
  Receive Date: 20120727
  Receipt Date: 20120430
  Transmission Date: 20120928
  Serious: No
  Sender: FDA-Public Use
  Company Number: US-ASTRAZENECA-2012SE28143

PATIENT
  Sex: Female

DRUGS (5)
  1. SEROQUEL XR [Suspect]
     Route: 048
  2. SEROQUEL XR [Suspect]
     Indication: BIPOLAR I DISORDER
     Route: 048
  3. SEROQUEL XR [Suspect]
     Route: 048
  4. LAMICTAL [Concomitant]
     Indication: BIPOLAR I DISORDER
     Route: 048
     Dates: start: 20120101
  5. ABILIFY [Concomitant]

REACTIONS (2)
  - DYSPHAGIA [None]
  - HALLUCINATION [None]
